FAERS Safety Report 5235342-3 (Version None)
Quarter: 2007Q1

REPORT INFORMATION
  Report Type: 
  Country: None (occurrence: None)
  Receive Date: 20070207
  Receipt Date: 20070207
  Transmission Date: 20070707
  Serious: Yes (Other)
  Sender: FDA-Public Use
  Company Number: None

PATIENT
  Sex: Female
  Weight: 62.1428 kg

DRUGS (2)
  1. CLEOCIN [Suspect]
     Indication: HAEMOPHILUS INFECTION
     Dates: start: 20070201, end: 20070205
  2. CLEOCIN [Suspect]
     Indication: VAGINITIS BACTERIAL
     Dates: start: 20070201, end: 20070205

REACTIONS (5)
  - DRUG HYPERSENSITIVITY [None]
  - HYPERAESTHESIA [None]
  - PRURITUS GENITAL [None]
  - RASH [None]
  - VULVAL OEDEMA [None]
